FAERS Safety Report 24613238 (Version 1)
Quarter: 2024Q4

REPORT INFORMATION
  Report Type: Spontaneous
  Country: BE (occurrence: BE)
  Receive Date: 20241113
  Receipt Date: 20241113
  Transmission Date: 20250115
  Serious: Yes (Hospitalization, Other)
  Sender: BAXTER
  Company Number: None

PATIENT
  Age: 34 Year
  Sex: Female
  Weight: 63 kg

DRUGS (12)
  1. CYCLOPHOSPHAMIDE [Suspect]
     Active Substance: CYCLOPHOSPHAMIDE
     Indication: Triple negative breast cancer
     Dosage: 1000 MG, TOTAL
     Route: 065
     Dates: start: 20241004
  2. ZIEXTENZO [Suspect]
     Active Substance: PEGFILGRASTIM-BMEZ
     Indication: Neutropenia
     Dosage: 6 MG, TOTAL, 1 DAY AFTER THE COURSE OF CHEMOTHERAPY1ST INJECTION OF ZIEXTENZO FOR THIS PATIENT - THE
     Route: 058
     Dates: start: 20241005
  3. KEYTRUDA [Suspect]
     Active Substance: PEMBROLIZUMAB
     Indication: Triple negative breast cancer
     Dosage: 200 MG, TOTAL, EVERY 3 WEEKS
     Route: 065
     Dates: start: 20241004
  4. EPIRUBICIN [Suspect]
     Active Substance: EPIRUBICIN
     Indication: Triple negative breast cancer
     Dosage: 150 MG, TOTAL
     Route: 065
     Dates: start: 20241004
  5. Netupitant and palonosetron hydrochloride [Concomitant]
     Dosage: UNK, PALONOSETRON (STRENGTH: 0.5MG), NETUPITANT (STRENGTH: 300MG)
     Route: 065
     Dates: start: 20241004
  6. DEXAMETHASONE ORGANON [Concomitant]
     Dosage: 10 MG
     Route: 065
     Dates: start: 20241004
  7. POVIDONE-IODINE [Concomitant]
     Active Substance: POVIDONE-IODINE
     Dosage: UNK, ORAL
     Route: 065
  8. Befact forte [Concomitant]
     Dosage: 1 DOSAGE FORM, ONCE A DAY
     Route: 065
  9. ALIZAPRIDE HYDROCHLORIDE [Concomitant]
     Active Substance: ALIZAPRIDE HYDROCHLORIDE
     Dosage: 3 DOSAGE FORM, ONCE A DAY, IF NEEDED
     Route: 065
  10. ESTIVAN [Concomitant]
     Dosage: 2 DOSAGE FORM, ONCE A DAY
     Route: 065
  11. RUPATALL [Concomitant]
     Dosage: 4 DOSAGE FORM, ONCE A DAY, 2 TABS 2X/D
     Route: 065
  12. VENTOLIN [Concomitant]
     Active Substance: ALBUTEROL SULFATE
     Dosage: UNK, AS NECESSARY
     Route: 065

REACTIONS (9)
  - Drug ineffective [Recovering/Resolving]
  - Odynophagia [Recovering/Resolving]
  - Feeding disorder [Recovering/Resolving]
  - Pancytopenia [Recovering/Resolving]
  - Pyrexia [Recovering/Resolving]
  - Normocytic anaemia [Recovering/Resolving]
  - Thrombocytopenia [Recovering/Resolving]
  - Leukopenia [Recovering/Resolving]
  - Neutropenia [Recovering/Resolving]

NARRATIVE: CASE EVENT DATE: 20241006
